FAERS Safety Report 6508249-9 (Version None)
Quarter: 2009Q4

REPORT INFORMATION
  Report Type: 
  Country: None (occurrence: None)
  Receive Date: 20091221
  Receipt Date: 20091214
  Transmission Date: 20100525
  Serious: Yes (Other)
  Sender: FDA-Public Use
  Company Number: US-PERRIGO-09US005786

PATIENT
  Sex: Male
  Weight: 90.703 kg

DRUGS (2)
  1. MINOXIDIL 5% 30DAY 380 [Suspect]
     Indication: ALOPECIA
     Dosage: 1 APPLICATION, BID
     Route: 061
     Dates: start: 20091205, end: 20091209
  2. PAXIL [Concomitant]
     Indication: DEPRESSION
     Dosage: 20 MG, QD
     Route: 048
     Dates: start: 20091201

REACTIONS (8)
  - DERMATITIS CONTACT [None]
  - ERYTHEMA [None]
  - EYE SWELLING [None]
  - HYPERSENSITIVITY [None]
  - PRURITUS GENERALISED [None]
  - SKIN BURNING SENSATION [None]
  - SKIN EXFOLIATION [None]
  - SWELLING FACE [None]
